FAERS Safety Report 14674915 (Version 2)
Quarter: 2018Q2

REPORT INFORMATION
  Report Type: Spontaneous
  Country: BR (occurrence: BR)
  Receive Date: 20180323
  Receipt Date: 20180622
  Transmission Date: 20180711
  Serious: Yes (Other)
  Sender: FDA-Public Use
  Company Number: BR-009507513-1803BRA006783

PATIENT
  Age: 62 Year
  Sex: Female
  Weight: 51 kg

DRUGS (10)
  1. SOMALGIN [Concomitant]
     Active Substance: ASPIRIN\DIHYDROXYALUMINUM AMINOACETATE ANHYDROUS\MAGNESIUM CARBONATE
     Dosage: 200 MG, UNK
     Route: 048
     Dates: start: 20180307
  2. AMLODIPINE BESYLATE AND VALSARTAN [Concomitant]
     Active Substance: AMLODIPINE BESYLATE\VALSARTAN
     Dosage: 1 TABLET (1 DF), PER DAY (QD)
     Route: 048
  3. CRESTOR [Concomitant]
     Active Substance: ROSUVASTATIN CALCIUM
     Dosage: 1 TABLET, UNK
     Route: 048
     Dates: end: 20180307
  4. AMLODIPINE BESYLATE AND VALSARTAN [Concomitant]
     Active Substance: AMLODIPINE BESYLATE\VALSARTAN
     Dosage: 5 MG, UNK
     Route: 048
  5. JANUMET [Suspect]
     Active Substance: METFORMIN HYDROCHLORIDE\SITAGLIPTIN PHOSPHATE
     Dosage: 1 TABLET PER DAY IN THE MORNING
     Route: 048
     Dates: start: 2016, end: 20180307
  6. CRESTOR [Concomitant]
     Active Substance: ROSUVASTATIN CALCIUM
     Dosage: 20 MG, UNK
     Route: 048
     Dates: start: 20180307
  7. JANUMET [Suspect]
     Active Substance: METFORMIN HYDROCHLORIDE\SITAGLIPTIN PHOSPHATE
     Dosage: 2 TABLETS PER DAY
     Route: 048
     Dates: start: 20180307
  8. LOTAR [Concomitant]
     Active Substance: AMLODIPINE\LOSARTAN
     Dosage: 1 TABLET (1 DF), PER DAY (QD)
     Route: 048
     Dates: end: 20180307
  9. DIAMICRON [Concomitant]
     Active Substance: GLICLAZIDE
     Dosage: 1 TABLET (1 DF), UNK
     Route: 048
  10. SOMALGIN [Concomitant]
     Active Substance: ASPIRIN\DIHYDROXYALUMINUM AMINOACETATE ANHYDROUS\MAGNESIUM CARBONATE
     Dosage: 1 TABLET ORALLY AFTER LUNCH
     Route: 048
     Dates: end: 20180307

REACTIONS (13)
  - Laboratory test abnormal [Recovered/Resolved]
  - Vitamin D deficiency [Not Recovered/Not Resolved]
  - Malaise [Recovered/Resolved]
  - Pain in extremity [Not Recovered/Not Resolved]
  - Diabetes mellitus inadequate control [Recovered/Resolved]
  - Inappropriate schedule of drug administration [Unknown]
  - Pyrexia [Recovered/Resolved]
  - Adverse event [Unknown]
  - Osteoarthritis [Not Recovered/Not Resolved]
  - Emotional disorder [Recovered/Resolved]
  - Feeling abnormal [Recovered/Resolved]
  - Arthritis [Not Recovered/Not Resolved]
  - Osteoporosis [Not Recovered/Not Resolved]

NARRATIVE: CASE EVENT DATE: 2016
